FAERS Safety Report 22288193 (Version 1)
Quarter: 2023Q2

REPORT INFORMATION
  Report Type: Spontaneous
  Country: US (occurrence: US)
  Receive Date: 20230505
  Receipt Date: 20230505
  Transmission Date: 20230721
  Serious: Yes (Death, Other)
  Sender: FDA-Public Use
  Company Number: US-MALLINCKRODT-MNK202301479

PATIENT
  Age: 15 Year
  Sex: Male

DRUGS (3)
  1. UVADEX [Suspect]
     Active Substance: METHOXSALEN
     Indication: Graft versus host disease in gastrointestinal tract
     Dosage: UNKNOWN
     Route: 050
     Dates: start: 20230301, end: 2023
  2. UVADEX [Suspect]
     Active Substance: METHOXSALEN
     Dosage: UNKNOWN
     Route: 050
     Dates: start: 2023, end: 20230413
  3. HEPARIN [Concomitant]
     Active Substance: HEPARIN SODIUM
     Indication: Anticoagulant therapy
     Dosage: 10,000/500ML NACL (RATIO 14:1)

REACTIONS (4)
  - Death [Fatal]
  - Platelet count decreased [Unknown]
  - Platelet transfusion [Unknown]
  - Product use in unapproved indication [Unknown]

NARRATIVE: CASE EVENT DATE: 20230301
